FAERS Safety Report 18082755 (Version 1)
Quarter: 2020Q3

REPORT INFORMATION
  Report Type: Spontaneous
  Country: DK (occurrence: DK)
  Receive Date: 20200728
  Receipt Date: 20200728
  Transmission Date: 20201103
  Serious: Yes (Hospitalization)
  Sender: FDA-Public Use
  Company Number: DK-ELI_LILLY_AND_COMPANY-DK202007008791

PATIENT
  Age: 23 Year
  Sex: Female

DRUGS (3)
  1. ZYPADHERA [Suspect]
     Active Substance: OLANZAPINE PAMOATE
     Indication: MENTAL DISORDER
     Dosage: 300 MG, 2/W
     Route: 065
     Dates: start: 20170424, end: 20200630
  2. ZYPADHERA [Suspect]
     Active Substance: OLANZAPINE PAMOATE
     Indication: MENTAL DISORDER
     Dosage: 300 MG, 2/W
     Route: 065
     Dates: start: 20170424, end: 20200630
  3. ZYPADHERA [Suspect]
     Active Substance: OLANZAPINE PAMOATE
     Indication: MENTAL DISORDER
     Dosage: 300 MG, 2/W
     Route: 065
     Dates: start: 20170424, end: 20200630

REACTIONS (6)
  - Screaming [Unknown]
  - Restlessness [Unknown]
  - Nausea [Recovered/Resolved]
  - Pain [Unknown]
  - Somnolence [Recovered/Resolved]
  - Post-injection delirium sedation syndrome [Recovered/Resolved]

NARRATIVE: CASE EVENT DATE: 202006
